FAERS Safety Report 10482911 (Version 1)
Quarter: 2014Q3

REPORT INFORMATION
  Report Type: Spontaneous
  Country: JP (occurrence: JP)
  Receive Date: 20140929
  Receipt Date: 20140929
  Transmission Date: 20150326
  Serious: Yes (Death)
  Sender: FDA-Public Use
  Company Number: JP-CELGENE-087-50794-14093938

PATIENT
  Age: 79 Year
  Sex: Male

DRUGS (3)
  1. VIDAZA [Suspect]
     Active Substance: AZACITIDINE
     Indication: ACUTE MYELOID LEUKAEMIA
     Route: 065
  2. CYTARABINE. [Suspect]
     Active Substance: CYTARABINE
     Indication: ACUTE MYELOID LEUKAEMIA
     Dosage: LOW DOSE
     Route: 065
  3. ACLARUBICIN [Suspect]
     Active Substance: ACLARUBICIN
     Indication: ACUTE MYELOID LEUKAEMIA
     Route: 065

REACTIONS (1)
  - Acute myeloid leukaemia [Fatal]
